FAERS Safety Report 9144878 (Version 1)
Quarter: 2013Q1

REPORT INFORMATION
  Report Type: Spontaneous
  Country: BR (occurrence: BR)
  Receive Date: 20130307
  Receipt Date: 20130307
  Transmission Date: 20140127
  Serious: Yes (Death, Other)
  Sender: FDA-Public Use
  Company Number: BR-AMGEN-BRACT2011023125

PATIENT
  Age: 56 Year
  Sex: Female
  Weight: 60 kg

DRUGS (7)
  1. ENBREL [Suspect]
     Dosage: 50 MG, QWK
     Route: 058
     Dates: start: 201012
  2. ENBREL [Suspect]
     Dosage: UNK
  3. ENDOFOLIN                          /00024201/ [Concomitant]
     Indication: PRODUCT USED FOR UNKNOWN INDICATION
     Dosage: 25MG, 3X/WEEK
  4. METHOTREXATE [Concomitant]
     Indication: PRODUCT USED FOR UNKNOWN INDICATION
     Dosage: 2.5 MG, 3X/WEEK
  5. INSULIN INJECTION, ISOPHANE [Concomitant]
     Indication: DIABETES MELLITUS
     Dosage: UNK, 2X/DAY
  6. HUMALOG                            /00030501/ [Concomitant]
     Indication: DIABETES MELLITUS
     Dosage: UNK, AS NEEDED
  7. LEXOTAN [Concomitant]
     Indication: PRODUCT USED FOR UNKNOWN INDICATION
     Dosage: 6 MG, 1X/DAY

REACTIONS (7)
  - Death [Fatal]
  - Nosocomial infection [Unknown]
  - Limb deformity [Unknown]
  - Synovial cyst [Unknown]
  - Musculoskeletal disorder [Unknown]
  - Neck pain [Unknown]
  - Pain [Unknown]
